FAERS Safety Report 9259869 (Version 1)
Quarter: 2013Q2

REPORT INFORMATION
  Report Type: Report from Study
  Country: GB (occurrence: GB)
  Receive Date: 20130429
  Receipt Date: 20130429
  Transmission Date: 20140414
  Serious: Yes (Death)
  Sender: FDA-Public Use
  Company Number: GB-ROCHE-1216056

PATIENT
  Sex: Male
  Weight: 85 kg

DRUGS (2)
  1. RITUXIMAB [Suspect]
     Indication: RHEUMATOID ARTHRITIS
     Route: 065
     Dates: start: 20110107, end: 20110615
  2. METHOTREXATE [Concomitant]

REACTIONS (3)
  - Pulmonary oedema [Fatal]
  - Renal failure acute [Fatal]
  - Rhabdomyolysis [Fatal]
